FAERS Safety Report 8258388-X (Version None)
Quarter: 2012Q2

REPORT INFORMATION
  Report Type: 
  Country: None (occurrence: None)
  Receive Date: 20120403
  Receipt Date: 20120403
  Transmission Date: 20120825
  Serious: Yes (Other)
  Sender: FDA-Public Use
  Company Number: None

PATIENT
  Sex: Female

DRUGS (2)
  1. LAMICTAL [Suspect]
     Indication: AICARDI'S SYNDROME
     Dosage: 1 QAM PO
     Route: 048
     Dates: start: 20090526
  2. LAMICTAL [Suspect]
     Indication: EPILEPSY
     Dosage: 1 QAM PO
     Route: 048
     Dates: start: 20090526

REACTIONS (2)
  - TREATMENT FAILURE [None]
  - RASH [None]
